FAERS Safety Report 5209968-7 (Version None)
Quarter: 2006Q4

REPORT INFORMATION
  Report Type: 
  Country: None (occurrence: None)
  Receive Date: 20061128
  Receipt Date: 20060828
  Transmission Date: 20070319
  Serious: Yes (Other)
  Sender: FDA-Public Use
  Company Number: 2006104784

PATIENT
  Sex: Male

DRUGS (10)
  1. TIKOSYN [Suspect]
     Indication: VENTRICULAR TACHYCARDIA
     Dosage: BID INTERVAL; EVERY DAY
     Dates: start: 20060826
  2. TORSEMIDE [Concomitant]
  3. POTASSIUM ACETATE [Concomitant]
  4. PRILOSEC [Concomitant]
  5. TRAZODONE HCL [Concomitant]
  6. EFFEXOR [Concomitant]
  7. COREG [Concomitant]
  8. LIPITOR [Concomitant]
  9. DIGITALIS TAB [Concomitant]
  10. ALTACE [Concomitant]

REACTIONS (2)
  - ATRIAL FIBRILLATION [None]
  - BLOOD POTASSIUM DECREASED [None]
